FAERS Safety Report 8044255 (Version 8)
Quarter: 2014Q1

REPORT INFORMATION
  Report Type: Report from Study
  Country: IT (occurrence: IT)
  Receive Date: 20110719
  Receipt Date: 20140213
  Transmission Date: 20141002
  Serious: Yes (Life-Threatening, Hospitalization)
  Sender: FDA-Public Use
  Company Number: IT-AMGEN-ITACT2011023939

PATIENT
  Age: 63 Year
  Sex: Male
  Weight: 66 kg

DRUGS (10)
  1. PANITUMUMAB [Suspect]
     Indication: COLORECTAL CANCER
     Dosage: 490 MG, Q2WK
     Route: 042
     Dates: start: 20110404
  2. IRINOTECAN [Concomitant]
     Indication: COLORECTAL CANCER
     Dosage: 300 MG, UNK
     Dates: start: 20110404
  3. OXALIPLATIN [Concomitant]
     Indication: COLORECTAL CANCER
     Dosage: 170 MG, UNK
     Dates: start: 20110404
  4. LEUCOVORIN [Concomitant]
     Indication: COLORECTAL CANCER
     Dosage: 400 MG, UNK
     Dates: start: 20110404
  5. 5-FLUOROURACIL [Concomitant]
     Indication: COLORECTAL CANCER
     Dosage: 4800 MG, UNK
     Dates: start: 20110404
  6. METFORMINA [Concomitant]
     Indication: DIABETES MELLITUS
     Dosage: 1000 MG, UNK
     Route: 048
     Dates: end: 20110506
  7. LUCONAZOL [Concomitant]
     Indication: MUCOSAL INFLAMMATION
     Dosage: 200 MG, UNK
     Route: 042
     Dates: start: 20110505
  8. LANSOPRAZOLE [Concomitant]
     Indication: GASTRITIS
     Dosage: 30 MG, UNK
     Route: 048
     Dates: start: 20110404, end: 20110506
  9. OXYCODONE [Concomitant]
     Indication: PAIN
     Dosage: 20 MG, UNK
     Route: 048
     Dates: start: 20110502, end: 20110506
  10. DEXAMETHASONE [Concomitant]
     Indication: NAUSEA
     Dosage: 4 MG, UNK
     Route: 048
     Dates: start: 20110505, end: 20110506

REACTIONS (1)
  - Necrotising fasciitis [Recovered/Resolved with Sequelae]
